FAERS Safety Report 15825970 (Version 2)
Quarter: 2019Q2

REPORT INFORMATION
  Report Type: Report from Study
  Country: US (occurrence: US)
  Receive Date: 20190115
  Receipt Date: 20190404
  Transmission Date: 20190711
  Serious: Yes (Hospitalization, Other)
  Sender: FDA-Public Use
  Company Number: US-AMGEN-USACT2019004180

PATIENT
  Age: 42 Year
  Sex: Male
  Weight: 112.9 kg

DRUGS (2)
  1. RITUXIMAB. [Suspect]
     Active Substance: RITUXIMAB
     Indication: ANTIBODY TEST ABNORMAL
     Dosage: UNK UNK, PER CHEMO REGIM
     Route: 065
  2. CARFILZOMIB [Suspect]
     Active Substance: CARFILZOMIB
     Indication: ANTIBODY TEST ABNORMAL
     Dosage: UNK UNK, PER CHEMO REGIM (12 DOSES)
     Route: 042
     Dates: start: 20181031

REACTIONS (1)
  - Graft thrombosis [Unknown]

NARRATIVE: CASE EVENT DATE: 20190103
